FAERS Safety Report 26126371 (Version 1)
Quarter: 2025Q4

REPORT INFORMATION
  Report Type: Spontaneous
  Country: US (occurrence: US)
  Receive Date: 20251205
  Receipt Date: 20251205
  Transmission Date: 20260117
  Serious: Yes (Other)
  Sender: BAXTER
  Company Number: US-BAXTER-2025BAX025047

PATIENT
  Age: 61 Year
  Sex: Female

DRUGS (1)
  1. VANCOMYCIN [Suspect]
     Active Substance: VANCOMYCIN
     Dosage: ON DAYS 1-20
     Route: 042

REACTIONS (2)
  - Autoimmune haemolytic anaemia [Recovered/Resolved]
  - Haemolysis [Recovered/Resolved]
